FAERS Safety Report 14513961 (Version 1)
Quarter: 2018Q1

REPORT INFORMATION
  Report Type: Spontaneous
  Country: JP (occurrence: JP)
  Receive Date: 20180209
  Receipt Date: 20180209
  Transmission Date: 20180509
  Serious: Yes (Other)
  Sender: FDA-Public Use
  Company Number: JP-FERRINGPH-2018FE00552

PATIENT

DRUGS (3)
  1. PROGESTERONE. [Suspect]
     Active Substance: PROGESTERONE
     Indication: IN VITRO FERTILISATION
     Route: 065
  2. ESTROGEN [Suspect]
     Active Substance: ESTROGENS
     Indication: IN VITRO FERTILISATION
  3. ASPIRIN                            /00002701/ [Concomitant]
     Active Substance: ASPIRIN
     Indication: IN VITRO FERTILISATION

REACTIONS (1)
  - Placenta accreta [Recovered/Resolved]
